FAERS Safety Report 4285042-1 (Version None)
Quarter: 2004Q1

REPORT INFORMATION
  Report Type: 
  Country: None (occurrence: None)
  Receive Date: 20040204
  Receipt Date: 20040123
  Transmission Date: 20041129
  Serious: Yes (Other)
  Sender: FDA-Public Use
  Company Number: WAES 0401ZAF00007

PATIENT
  Age: 66 Year
  Sex: Female
  Weight: 74 kg

DRUGS (9)
  1. ALBUTEROL [Concomitant]
     Indication: ASTHMA
     Route: 055
  2. ASPIRIN [Concomitant]
  3. CLOPIDOGREL BISULFATE [Concomitant]
     Route: 048
  4. ESTRADIOL [Concomitant]
     Indication: MENOPAUSE
     Route: 048
  5. FLUTICASONE PROPIONATE [Concomitant]
     Indication: ASTHMA
     Route: 055
  6. FORMOTEROL FUMARATE [Concomitant]
     Indication: ASTHMA
  7. IRBESARTAN [Concomitant]
     Indication: ESSENTIAL HYPERTENSION
     Route: 048
  8. PIROXICAM [Concomitant]
     Route: 048
  9. VIOXX [Suspect]
     Indication: PAIN IN EXTREMITY
     Dates: end: 20030901

REACTIONS (12)
  - ACUTE PULMONARY OEDEMA [None]
  - AIR EMBOLISM [None]
  - BRADYCARDIA [None]
  - CEREBROVASCULAR ACCIDENT [None]
  - CHEST DISCOMFORT [None]
  - HYPOAESTHESIA ORAL [None]
  - LETHARGY [None]
  - LOSS OF CONSCIOUSNESS [None]
  - PRURITUS [None]
  - RASH [None]
  - RECTAL CANCER [None]
  - TRANSIENT ISCHAEMIC ATTACK [None]
